FAERS Safety Report 18113505 (Version 5)
Quarter: 2020Q3

REPORT INFORMATION
  Report Type: Spontaneous
  Country: PK (occurrence: PK)
  Receive Date: 20200805
  Receipt Date: 20200915
  Transmission Date: 20201103
  Serious: Yes (Hospitalization, Disabling, Other)
  Sender: FDA-Public Use
  Company Number: PK-ROCHE-2649013

PATIENT
  Age: 75 Year
  Sex: Male

DRUGS (2)
  1. AVASTIN [Suspect]
     Active Substance: BEVACIZUMAB
     Indication: RETINOPATHY
     Dosage: 2.5MG/0.1ML
     Route: 050
     Dates: start: 20200717, end: 20200717
  2. AVASTIN [Suspect]
     Active Substance: BEVACIZUMAB
     Route: 050
     Dates: start: 202003

REACTIONS (9)
  - Off label use [Unknown]
  - Endophthalmitis [Recovered/Resolved with Sequelae]
  - Blindness [Unknown]
  - Suspected transmission of an infectious agent via product [Unknown]
  - Enterobacter test positive [Unknown]
  - Visual impairment [Unknown]
  - Suspected counterfeit product [Unknown]
  - Pain [Unknown]
  - Intentional product use issue [Unknown]

NARRATIVE: CASE EVENT DATE: 20200718
